FAERS Safety Report 22217965 (Version 1)
Quarter: 2023Q2

REPORT INFORMATION
  Report Type: Spontaneous
  Country: NL (occurrence: NL)
  Receive Date: 20230417
  Receipt Date: 20230417
  Transmission Date: 20230721
  Serious: Yes (Other)
  Sender: FDA-Public Use
  Company Number: None

PATIENT
  Sex: Female
  Weight: 60 kg

DRUGS (3)
  1. METOPROLOL [Suspect]
     Active Substance: METOPROLOL
     Indication: Hypertension
     Dosage: STRENGTH:50MG, 1 X DAILY 1 PIECE
     Dates: start: 20230216
  2. PREGABALIN [Suspect]
     Active Substance: PREGABALIN
     Indication: Restlessness
     Dosage: STRENGTH:75 MG, 4X75 GRAMS DIVIDED OVER 3 MOMENTS
     Dates: start: 20230216
  3. ETHINYL ESTRADIOL\NORGESTREL [Concomitant]
     Active Substance: ETHINYL ESTRADIOL\NORGESTREL
     Dosage: TABLET

REACTIONS (3)
  - Aggression [Recovering/Resolving]
  - Depressed mood [Recovered/Resolved]
  - Suicidal ideation [Recovering/Resolving]
